FAERS Safety Report 7017611-X (Version None)
Quarter: 2010Q3

REPORT INFORMATION
  Report Type: 
  Country: None (occurrence: None)
  Receive Date: 20100928
  Receipt Date: 20100322
  Transmission Date: 20110219
  Serious: No
  Sender: FDA-Public Use
  Company Number: US-BAYER-201020506BCC

PATIENT
  Age: 52 Year

DRUGS (2)
  1. ALEVE [Suspect]
     Indication: PRODUCT USED FOR UNKNOWN INDICATION
     Dosage: AS USED: 220/440 MG  UNIT DOSE: 220 MG
     Route: 048
  2. PAXIL [Concomitant]

REACTIONS (1)
  - NO ADVERSE EVENT [None]
